FAERS Safety Report 21653826 (Version 1)
Quarter: 2022Q4

REPORT INFORMATION
  Report Type: Spontaneous
  Country: NL (occurrence: NL)
  Receive Date: 20221129
  Receipt Date: 20221129
  Transmission Date: 20230113
  Serious: Yes (Death, Other)
  Sender: FDA-Public Use
  Company Number: NL-LRB-00845534

PATIENT
  Sex: Male
  Weight: 76 kg

DRUGS (1)
  1. CLOZAPINE [Suspect]
     Active Substance: CLOZAPINE
     Indication: Schizophrenia
     Dosage: 300 MILLIGRAM, ONCE A DAY (1 X PER DAG 3 STUKS)
     Route: 065
     Dates: start: 20130201

REACTIONS (2)
  - Arrhythmia [Fatal]
  - Snoring [Fatal]
